FAERS Safety Report 20167307 (Version 3)
Quarter: 2021Q4

REPORT INFORMATION
  Report Type: Report from Study
  Country: JP (occurrence: JP)
  Receive Date: 20211209
  Receipt Date: 20211220
  Transmission Date: 20220304
  Serious: Yes (Hospitalization)
  Sender: FDA-Public Use
  Company Number: JP-ONO-2021JP030501

PATIENT
  Age: 70 Year
  Sex: Male
  Weight: 44.6 kg

DRUGS (11)
  1. BMS-986310 [Suspect]
     Active Substance: BMS-986310
     Indication: Gastric cancer recurrent
     Dosage: 40 MILLIGRAM, QD, BEFORE BREAKFAST
     Route: 048
     Dates: start: 20210812
  2. NIVOLUMAB [Suspect]
     Active Substance: NIVOLUMAB
     Indication: Gastric cancer recurrent
     Dosage: 480 MILLIGRAM, Q4WK
     Route: 041
     Dates: start: 20210812
  3. URSODIOL [Concomitant]
     Active Substance: URSODIOL
     Indication: Liver disorder
     Dosage: 100 MG, Q8H,  AFTER EACH MEAL
     Route: 048
     Dates: start: 20211010
  4. AMMONIUM GLYCYRRHIZATE\GLYCINE\RACEMETHIONINE [Concomitant]
     Active Substance: AMMONIUM GLYCYRRHIZATE\GLYCINE\RACEMETHIONINE
     Indication: Liver disorder
     Dosage: UNK,Q8H, AFTER EACH MEAL
     Route: 048
     Dates: start: 20211010, end: 20211028
  5. PRASUGREL HYDROCHLORIDE [Concomitant]
     Active Substance: PRASUGREL HYDROCHLORIDE
     Indication: Angina pectoris
     Dosage: UNK, EVERYDAY, BEFORE BREAKFAST
     Route: 048
     Dates: start: 20210129
  6. ATORVASTATIN [Concomitant]
     Active Substance: ATORVASTATIN
     Indication: Hypercholesterolaemia
     Dosage: UNK, EVERYDAY, AFTER BREAKFAST
     Route: 048
     Dates: start: 20210112
  7. POLAPREZINC [Concomitant]
     Active Substance: POLAPREZINC
     Indication: Taste disorder
     Dosage: UNK, EVERYDAY, AFTER BREAKFAST
     Route: 048
     Dates: start: 20210406
  8. SODIUM FERROUS CITRATE [Concomitant]
     Active Substance: SODIUM FERROUS CITRATE
     Indication: Anaemia
     Dosage: UNK, EVERYDAY, AFTER BREAKFAST
     Route: 048
     Dates: start: 20210518
  9. LOSARTAN POTASSIUM [Concomitant]
     Active Substance: LOSARTAN POTASSIUM
     Indication: Hypertension
     Dosage: UNK, EVERYDAY, AFTER BREAKFAST
     Route: 048
     Dates: start: 20210908
  10. BROTIZOLAM [Concomitant]
     Active Substance: BROTIZOLAM
     Indication: Insomnia
     Dosage: UNK, EVERYDAY, BEFORE SLEEPING
     Route: 048
     Dates: start: 20210921
  11. BILASTINE [Concomitant]
     Active Substance: BILASTINE
     Indication: Rash pruritic
     Dosage: UNK, EVERYDAY, 2 HOURS AFTER BREAKFAST (BETWEEN BREAKFAST)
     Route: 048
     Dates: start: 20210625

REACTIONS (1)
  - Decreased appetite [Recovered/Resolved]

NARRATIVE: CASE EVENT DATE: 20211201
